FAERS Safety Report 7961481-X (Version None)
Quarter: 2011Q4

REPORT INFORMATION
  Report Type: 
  Country: None (occurrence: None)
  Receive Date: 20111207
  Receipt Date: 20111117
  Transmission Date: 20120403
  Serious: No
  Sender: FDA-Public Use
  Company Number: US-ROXANE LABORATORIES, INC.-2011-RO-01519RO

PATIENT
  Sex: Male

DRUGS (2)
  1. ALLEGRA [Concomitant]
     Indication: SEASONAL ALLERGY
  2. FLUTICASONE PROPIONATE [Suspect]
     Indication: RHINITIS
     Route: 045

REACTIONS (1)
  - APPLICATION SITE ODOUR [None]
